FAERS Safety Report 14206885 (Version 1)
Quarter: 2017Q4

REPORT INFORMATION
  Report Type: Spontaneous
  Country: FR (occurrence: FR)
  Receive Date: 20171121
  Receipt Date: 20171121
  Transmission Date: 20180321
  Serious: Yes (Other)
  Sender: FDA-Public Use
  Company Number: FR-009507513-1711FRA007702

PATIENT
  Sex: Male

DRUGS (3)
  1. BRIDION [Suspect]
     Active Substance: SUGAMMADEX
     Dosage: 4 MG/KG, UNK
     Dates: start: 201711
  2. ESMERON [Suspect]
     Active Substance: ROCURONIUM BROMIDE
     Indication: NEUROMUSCULAR BLOCKING THERAPY
     Dosage: UNK
     Dates: start: 201711
  3. BRIDION [Suspect]
     Active Substance: SUGAMMADEX
     Indication: MUSCLE RELAXANT DRUG LEVEL
     Dosage: 2 MG/KG, UNK
     Dates: start: 201711

REACTIONS (1)
  - Cardiac arrest [Recovered/Resolved]

NARRATIVE: CASE EVENT DATE: 201711
